FAERS Safety Report 5737296-X (Version None)
Quarter: 2008Q2

REPORT INFORMATION
  Report Type: 
  Country: None (occurrence: None)
  Receive Date: 20080512
  Receipt Date: 20080512
  Transmission Date: 20081010
  Serious: Yes (Other)
  Sender: FDA-Public Use
  Company Number: None

PATIENT
  Age: 59 Year
  Sex: Male
  Weight: 74.8435 kg

DRUGS (3)
  1. METOPROLOL SUCCINATE 100 MILLOGRAMS UNKNOWN [Suspect]
     Indication: HYPERTENSION
     Dosage: 50 MG. -1/2 OF ONE TABLET- TWICE DAILY PO
     Route: 048
     Dates: start: 19990101, end: 20070101
  2. BUPROPION SR 150 MILLOGRAMS UNKNOWN [Suspect]
     Indication: DEPRESSION
     Dosage: 150 MG. TWICE DAILY PO
     Route: 048
     Dates: start: 20061115, end: 20070301
  3. BUPROPION SR 150 MILLOGRAMS UNKNOWN [Suspect]
     Indication: MOOD ALTERED
     Dosage: 150 MG. TWICE DAILY PO
     Route: 048
     Dates: start: 20061115, end: 20070301

REACTIONS (5)
  - BLOOD PRESSURE INADEQUATELY CONTROLLED [None]
  - DRUG INEFFECTIVE [None]
  - INSOMNIA [None]
  - PHARMACEUTICAL PRODUCT COMPLAINT [None]
  - SLEEP DISORDER [None]
